FAERS Safety Report 4748193-0 (Version None)
Quarter: 2005Q3

REPORT INFORMATION
  Report Type: 
  Country: None (occurrence: None)
  Receive Date: 20050818
  Receipt Date: 20050630
  Transmission Date: 20060218
  Serious: Yes (Other)
  Sender: FDA-Public Use
  Company Number: PHBS2005CA09415

PATIENT
  Age: 15 Year
  Sex: Female

DRUGS (7)
  1. ZELNORM [Suspect]
     Indication: IRRITABLE BOWEL SYNDROME
     Dosage: 6 MG, TID
     Route: 048
     Dates: start: 20050601
  2. METFORMIN [Concomitant]
     Dosage: 1000 MG, BID
  3. PREDNISONE [Concomitant]
     Dosage: 15 MG/DAY
  4. LOSEC [Concomitant]
     Dosage: 20 MG, BID
  5. SEPTRA [Concomitant]
     Dosage: 1 DF/DAY
  6. SEROQUEL [Concomitant]
     Dosage: 200 MG, BID
  7. IMURAN [Concomitant]
     Dosage: 150 MG/DAY

REACTIONS (3)
  - CONSTIPATION [None]
  - DIARRHOEA HAEMORRHAGIC [None]
  - DRUG INEFFECTIVE [None]
